FAERS Safety Report 23191983 (Version 1)
Quarter: 2023Q4

REPORT INFORMATION
  Report Type: Spontaneous
  Country: US (occurrence: None)
  Receive Date: 20231115
  Receipt Date: 20231115
  Transmission Date: 20240110
  Serious: Yes (Life-Threatening, Hospitalization)
  Sender: FDA-Public Use
  Company Number: None

PATIENT
  Age: 77 Year
  Sex: Female
  Weight: 81 kg

DRUGS (1)
  1. TECVAYLI [Suspect]
     Active Substance: TECLISTAMAB-CQYV
     Indication: Plasma cell myeloma
     Dosage: 135 MG WEEKLY SUBCUTANEOUS?
     Route: 058
     Dates: start: 20230320, end: 20231010

REACTIONS (12)
  - Syncope [None]
  - Sepsis [None]
  - Pneumonia [None]
  - Febrile neutropenia [None]
  - Respiratory failure [None]
  - Pseudomonas infection [None]
  - White blood cell count decreased [None]
  - Neutrophil count abnormal [None]
  - Haemoglobin decreased [None]
  - Pneumonia streptococcal [None]
  - Hypertransaminasaemia [None]
  - Hepatitis B surface antigen [None]

NARRATIVE: CASE EVENT DATE: 20231108
